APPROVED DRUG PRODUCT: TAMSULOSIN HYDROCHLORIDE
Active Ingredient: TAMSULOSIN HYDROCHLORIDE
Strength: 0.4MG
Dosage Form/Route: CAPSULE;ORAL
Application: A202010 | Product #001
Applicant: PH HEALTH LTD
Approved: Jan 4, 2013 | RLD: No | RS: No | Type: DISCN